FAERS Safety Report 15633672 (Version 2)
Quarter: 2019Q2

REPORT INFORMATION
  Report Type: Report from Study
  Country: US (occurrence: US)
  Receive Date: 20181119
  Receipt Date: 20190521
  Transmission Date: 20190711
  Serious: No
  Sender: FDA-Public Use
  Company Number: US-SA-2018SA316108

PATIENT
  Age: 61 Year
  Sex: Female

DRUGS (3)
  1. SARILUMAB [Suspect]
     Active Substance: SARILUMAB
     Indication: POLYMYALGIA RHEUMATICA
  2. SARILUMAB [Suspect]
     Active Substance: SARILUMAB
     Indication: RHEUMATOID ARTHRITIS
     Dosage: 200 MG, QOW
     Route: 058
     Dates: start: 20180529, end: 20181126
  3. CLARITIN [Concomitant]
     Active Substance: LORATADINE

REACTIONS (5)
  - Injection site rash [Unknown]
  - Product use in unapproved indication [Unknown]
  - Injection site reaction [Recovered/Resolved]
  - Injection site pruritus [Recovered/Resolved]
  - Injection site urticaria [Recovered/Resolved]

NARRATIVE: CASE EVENT DATE: 20181001
